FAERS Safety Report 17879833 (Version 2)
Quarter: 2020Q3

REPORT INFORMATION
  Report Type: Spontaneous
  Country: US (occurrence: US)
  Receive Date: 20200610
  Receipt Date: 20200714
  Transmission Date: 20201103
  Serious: No
  Sender: FDA-Public Use
  Company Number: US-HTU-2019US019939

PATIENT
  Age: 53 Year
  Sex: Female

DRUGS (1)
  1. VALCHLOR [Suspect]
     Active Substance: MECHLORETHAMINE
     Indication: LYMPHOMATOID PAPULOSIS
     Dosage: THIN FILM, QOD
     Route: 061
     Dates: start: 201901

REACTIONS (8)
  - Miliaria [Recovered/Resolved]
  - Skin irritation [Unknown]
  - Exposure via skin contact [Unknown]
  - Lip pain [Recovered/Resolved]
  - Lip discolouration [Recovered/Resolved]
  - Accidental exposure to product [Unknown]
  - Hypoaesthesia oral [Recovered/Resolved]
  - Off label use [Unknown]

NARRATIVE: CASE EVENT DATE: 201901
